FAERS Safety Report 21781962 (Version 2)
Quarter: 2023Q2

REPORT INFORMATION
  Report Type: Spontaneous
  Country: JP (occurrence: JP)
  Receive Date: 20221227
  Receipt Date: 20230414
  Transmission Date: 20230721
  Serious: Yes (Other)
  Sender: FDA-Public Use
  Company Number: JP-002147023-NVSJ2022JP276975

PATIENT
  Age: 0 Year
  Sex: Male
  Weight: 7.8 kg

DRUGS (7)
  1. CYCLOSPORINE [Suspect]
     Active Substance: CYCLOSPORINE
     Indication: Kawasaki^s disease
     Dosage: 3 MG/KG/DAY
     Route: 042
     Dates: start: 20120807, end: 20120807
  2. CYCLOSPORINE [Suspect]
     Active Substance: CYCLOSPORINE
     Dosage: 2.7 MG/KG/DAY
     Route: 042
     Dates: start: 20120807, end: 20120808
  3. CYCLOSPORINE [Suspect]
     Active Substance: CYCLOSPORINE
     Dosage: 2.4 MG/KG/DAY
     Route: 042
     Dates: start: 20120808, end: 20120809
  4. CYCLOSPORINE [Suspect]
     Active Substance: CYCLOSPORINE
     Dosage: 2.1 MG/KG/DAY
     Route: 042
     Dates: start: 20120809, end: 20120810
  5. CYCLOSPORINE [Suspect]
     Active Substance: CYCLOSPORINE
     Dosage: 1.5 MG/KG/DAY
     Route: 042
     Dates: start: 20120810, end: 20120812
  6. CYCLOSPORINE [Suspect]
     Active Substance: CYCLOSPORINE
     Dosage: 1.2 MG/KG/DAY
     Route: 042
     Dates: start: 20120812, end: 20120813
  7. ASPIRIN [Concomitant]
     Active Substance: ASPIRIN
     Indication: Kawasaki^s disease
     Dosage: 100 MG, TID
     Route: 048
     Dates: start: 20120803, end: 20120809

REACTIONS (3)
  - Hyperkalaemia [Recovered/Resolved]
  - Product use in unapproved indication [Unknown]
  - Product use issue [Unknown]

NARRATIVE: CASE EVENT DATE: 20120807
